FAERS Safety Report 12900466 (Version 1)
Quarter: 2016Q4

REPORT INFORMATION
  Report Type: Spontaneous
  Country: US (occurrence: US)
  Receive Date: 20161031
  Receipt Date: 20161031
  Transmission Date: 20170207
  Serious: Yes (Life-Threatening, Hospitalization)
  Sender: FDA-Public Use
  Company Number: None

PATIENT
  Age: 59 Year
  Sex: Male
  Weight: 90.7 kg

DRUGS (1)
  1. SULFAMETHOXAZOLE/TRIMETHOPRIM [Suspect]
     Active Substance: SULFAMETHOXAZOLE\TRIMETHOPRIM
     Indication: OSTEOMYELITIS
     Dosage: SULFAMETHOXAZOLE/TRIMETHOPRIM 800/160 MG - BID - PO
     Route: 048
     Dates: start: 20140620, end: 20160919

REACTIONS (7)
  - Flushing [None]
  - Angioedema [None]
  - Chronic obstructive pulmonary disease [None]
  - Respiratory depression [None]
  - Feeling hot [None]
  - Rash [None]
  - Pruritus [None]

NARRATIVE: CASE EVENT DATE: 20160919
